FAERS Safety Report 24237821 (Version 1)
Quarter: 2024Q3

REPORT INFORMATION
  Report Type: Spontaneous
  Country: US (occurrence: US)
  Receive Date: 20240822
  Receipt Date: 20240822
  Transmission Date: 20241017
  Serious: No
  Sender: TEVA
  Company Number: US-TEVA-VS-3230138

PATIENT
  Age: 15 Month
  Sex: Male

DRUGS (1)
  1. PENICILLIN V POTASSIUM [Suspect]
     Active Substance: PENICILLIN V POTASSIUM
     Indication: Product used for unknown indication
     Dosage: 250/5 MG/ML
     Route: 065

REACTIONS (2)
  - Dental caries [Unknown]
  - Circumstance or information capable of leading to medication error [Unknown]
